FAERS Safety Report 5730447-2 (Version None)
Quarter: 2008Q2

REPORT INFORMATION
  Report Type: 
  Country: None (occurrence: None)
  Receive Date: 20080502
  Receipt Date: 20080418
  Transmission Date: 20081010
  Serious: Yes (Hospitalization, Other)
  Sender: FDA-Public Use
  Company Number: 2008S1006890

PATIENT
  Age: 26 Year
  Sex: Male

DRUGS (6)
  1. AZATHIOPRINE [Suspect]
     Indication: RENAL TRANSPLANT
  2. CYCLOSPORINE [Concomitant]
  3. PREDNISONE TAB [Concomitant]
  4. SIROLIMUS (SIROLIMUS) [Concomitant]
  5. METHYLPREDNISOLONE [Concomitant]
  6. VERAPAMIL [Concomitant]

REACTIONS (8)
  - BLOOD ALKALINE PHOSPHATASE INCREASED [None]
  - BLOOD CREATININE INCREASED [None]
  - HEPATIC CYST [None]
  - LIVER ABSCESS [None]
  - NORMOCHROMIC NORMOCYTIC ANAEMIA [None]
  - PROTEINURIA [None]
  - TUBERCULOSIS LIVER [None]
  - WEIGHT DECREASED [None]
